FAERS Safety Report 23560290 (Version 1)
Quarter: 2024Q1

REPORT INFORMATION
  Report Type: Spontaneous
  Country: US (occurrence: US)
  Receive Date: 20240223
  Receipt Date: 20240223
  Transmission Date: 20240410
  Serious: No
  Sender: FDA-Public Use
  Company Number: US-TARO PHARMACEUTICALS USA INC.-2023TAR00757

PATIENT

DRUGS (1)
  1. MINOXIDIL [Suspect]
     Active Substance: MINOXIDIL
     Indication: Alopecia
     Dosage: UNK, OD, HALF THE CAPFUL IF NOT LESS, ON THE SCALP
     Route: 061

REACTIONS (2)
  - Pruritus [Recovered/Resolved]
  - Condition aggravated [Recovered/Resolved]
